FAERS Safety Report 19645451 (Version 1)
Quarter: 2021Q3

REPORT INFORMATION
  Report Type: Spontaneous
  Country: US (occurrence: US)
  Receive Date: 20210730
  Receipt Date: 20210730
  Transmission Date: 20211014
  Serious: No
  Sender: FDA-Public Use
  Company Number: None

PATIENT
  Age: 76 Year
  Sex: Female
  Weight: 55.35 kg

DRUGS (14)
  1. HYDROXYZINE HYDROCHLORIDE. [Concomitant]
     Active Substance: HYDROXYZINE HYDROCHLORIDE
  2. LISINOPRIL. [Concomitant]
     Active Substance: LISINOPRIL
  3. MAGGIE^S BALM [Concomitant]
  4. CBD SALVE [Concomitant]
  5. CBD  25 MG [Concomitant]
  6. METOPROLOL SUCCINATE. [Concomitant]
     Active Substance: METOPROLOL SUCCINATE
  7. ALLERTEC [Concomitant]
     Active Substance: CETIRIZINE HYDROCHLORIDE
  8. MULTIVITAMIN [Concomitant]
     Active Substance: VITAMINS
  9. VITAMIN C [Concomitant]
     Active Substance: ASCORBIC ACID
  10. RESVERATROL W/GRAPESSEED [Concomitant]
  11. CHOLESTYRAMINE FOR ORAL SUSPENSION USP [Suspect]
     Active Substance: CHOLESTYRAMINE
     Indication: COLITIS
     Dosage: ?          QUANTITY:1 PACKET;?
     Route: 048
  12. HBP MONITOR [Concomitant]
  13. VITAMIN B12 [Concomitant]
     Active Substance: CYANOCOBALAMIN
  14. VITAMIN D [Concomitant]
     Active Substance: VITAMIN D NOS

REACTIONS (8)
  - Alopecia [None]
  - Pruritus [None]
  - Abdominal distension [None]
  - Headache [None]
  - Rash [None]
  - Toothache [None]
  - Autoimmune arthritis [None]
  - Dyspepsia [None]

NARRATIVE: CASE EVENT DATE: 20210618
